FAERS Safety Report 6037848-6 (Version None)
Quarter: 2009Q1

REPORT INFORMATION
  Report Type: 
  Country: None (occurrence: None)
  Receive Date: 20090114
  Receipt Date: 20090114
  Transmission Date: 20090719
  Serious: Yes (Other)
  Sender: FDA-Public Use
  Company Number: None

PATIENT
  Age: 37 Year
  Sex: Male
  Weight: 83.9154 kg

DRUGS (1)
  1. SEPTOCAINE [Suspect]
     Dosage: 4% SEPTOCAINE WITH EPI 1:100,000
     Dates: start: 20070507

REACTIONS (5)
  - ASTHENOPIA [None]
  - EYE PAIN [None]
  - FORMICATION [None]
  - OCULAR DISCOMFORT [None]
  - PARAESTHESIA [None]
